FAERS Safety Report 20502645 (Version 1)
Quarter: 2022Q1

REPORT INFORMATION
  Report Type: Spontaneous
  Country: US (occurrence: None)
  Receive Date: 20220220
  Receipt Date: 20220220
  Transmission Date: 20220423
  Serious: Yes (Hospitalization)
  Sender: FDA-Public Use
  Company Number: None

PATIENT
  Age: 55 Year
  Sex: Male
  Weight: 103.5 kg

DRUGS (9)
  1. NARCAN [Suspect]
     Active Substance: NALOXONE HYDROCHLORIDE
     Indication: Lethargy
     Dosage: OTHER FREQUENCY : 1 SHOT ADMINISTERE;?
     Dates: start: 20220217, end: 20220217
  2. LEXAPRO [Concomitant]
     Active Substance: ESCITALOPRAM OXALATE
  3. ABILIFY [Concomitant]
     Active Substance: ARIPIPRAZOLE
  4. SEROQUEL [Concomitant]
     Active Substance: QUETIAPINE FUMARATE
  5. REMERON [Concomitant]
     Active Substance: MIRTAZAPINE
  6. aciphix [Concomitant]
  7. gaberbetein [Concomitant]
  8. Leventhal hydrocodone [Concomitant]
  9. SOMA [Concomitant]
     Active Substance: CARISOPRODOL

REACTIONS (3)
  - Testicular pain [None]
  - Therapeutic product effect incomplete [None]
  - Somnolence [None]

NARRATIVE: CASE EVENT DATE: 20220217
